FAERS Safety Report 8224598-0 (Version None)
Quarter: 2012Q1

REPORT INFORMATION
  Report Type: 
  Country: None (occurrence: None)
  Receive Date: 20120321
  Receipt Date: 20120316
  Transmission Date: 20120608
  Serious: Yes (Hospitalization)
  Sender: FDA-Public Use
  Company Number: IT-PFIZER INC-2012047814

PATIENT
  Age: 49 Year
  Sex: Female

DRUGS (1)
  1. XANAX [Suspect]
     Dosage: 10 DOSAGE UNITS
     Route: 048
     Dates: start: 20120119, end: 20120119

REACTIONS (3)
  - INTENTIONAL OVERDOSE [None]
  - DIARRHOEA [None]
  - SOPOR [None]
